FAERS Safety Report 6487293-4 (Version None)
Quarter: 2009Q4

REPORT INFORMATION
  Report Type: 
  Country: None (occurrence: None)
  Receive Date: 20091123
  Receipt Date: 20090723
  Transmission Date: 20100525
  Serious: No
  Sender: FDA-Public Use
  Company Number: 8049361

PATIENT
  Age: 74 Year
  Sex: Female
  Weight: 59.1 kg

DRUGS (10)
  1. CIMZIA [Suspect]
     Indication: CROHN'S DISEASE
     Dosage: 400 MG SC
     Route: 058
     Dates: start: 20090201
  2. PENTASA [Concomitant]
  3. QEUSTRAN [Concomitant]
  4. KAPIDEX [Concomitant]
  5. XOPENEX [Concomitant]
  6. ADVAIR DISKUS 100/50 [Concomitant]
  7. PROPRANOLOL [Concomitant]
  8. ACTOS [Concomitant]
  9. ATIVAN [Concomitant]
  10. CALCIUM WITH D AND MAGNESIUM [Concomitant]

REACTIONS (3)
  - EXFOLIATIVE RASH [None]
  - NASOPHARYNGITIS [None]
  - RASH GENERALISED [None]
